FAERS Safety Report 15644324 (Version 7)
Quarter: 2020Q1

REPORT INFORMATION
  Report Type: Not Available
  Country: AT (occurrence: AT)
  Receive Date: 20181121
  Receipt Date: 20200122
  Transmission Date: 20200409
  Serious: Yes (Death)
  Sender: FDA-Public Use
  Company Number: AT-ANIPHARMA-2018-AT-000014

PATIENT
  Age: 54 Year
  Sex: Male
  Weight: 90 kg

DRUGS (6)
  1. DOCETAXEL. [Concomitant]
     Active Substance: DOCETAXEL
     Dosage: 75 MG/M2
     Route: 042
     Dates: start: 20170301, end: 20170301
  2. VARGATEF [Suspect]
     Active Substance: NINTEDANIB
     Dosage: 200 MG DAILY / 400 MG DAILY / 200 MG DAILY / 400 MG DAILY / 200 MG DAILY
     Route: 048
     Dates: start: 20170612, end: 20170709
  3. CANDESARTAN CILEXETIL. [Suspect]
     Active Substance: CANDESARTAN CILEXETIL
     Indication: PRODUCT USED FOR UNKNOWN INDICATION
     Route: 048
  4. THROMBO ASS [Suspect]
     Active Substance: ASPIRIN
     Route: 065
  5. ATORVASTATIN [Suspect]
     Active Substance: ATORVASTATIN
     Route: 065
  6. BISOCOR [Suspect]
     Active Substance: BISOPROLOL FUMARATE
     Route: 065

REACTIONS (3)
  - Haematochezia [Recovered/Resolved]
  - Diarrhoea [Unknown]
  - Neoplasm progression [Fatal]

NARRATIVE: CASE EVENT DATE: 20170123
